FAERS Safety Report 12610266 (Version 1)
Quarter: 2016Q3

REPORT INFORMATION
  Report Type: Spontaneous
  Country: US (occurrence: None)
  Receive Date: 20160729
  Receipt Date: 20160729
  Transmission Date: 20161109
  Serious: No
  Sender: FDA-Public Use
  Company Number: None

PATIENT
  Age: 68 Year
  Sex: Male

DRUGS (1)
  1. XELODA [Suspect]
     Active Substance: CAPECITABINE
     Indication: COLON CANCER

REACTIONS (2)
  - Palmar-plantar erythrodysaesthesia syndrome [None]
  - Neuropathy peripheral [None]

NARRATIVE: CASE EVENT DATE: 20160728
